FAERS Safety Report 17859171 (Version 1)
Quarter: 2020Q2

REPORT INFORMATION
  Report Type: Spontaneous
  Country: DE (occurrence: DE)
  Receive Date: 20200604
  Receipt Date: 20200604
  Transmission Date: 20200714
  Serious: Yes (Death)
  Sender: FDA-Public Use
  Company Number: DE-B.I. PHARMACEUTICALS,INC./RIDGEFIELD-2020-BI-027239

PATIENT
  Age: 72 Year
  Sex: Female

DRUGS (18)
  1. VARGATEF [Suspect]
     Active Substance: NINTEDANIB
     Route: 065
     Dates: start: 20190909
  2. DOCETAXEL. [Suspect]
     Active Substance: DOCETAXEL
     Route: 065
     Dates: start: 20190909
  3. DOCETAXEL. [Suspect]
     Active Substance: DOCETAXEL
     Route: 065
     Dates: start: 20191007
  4. DOCETAXEL. [Suspect]
     Active Substance: DOCETAXEL
     Route: 065
     Dates: start: 20200108
  5. VARGATEF [Suspect]
     Active Substance: NINTEDANIB
     Route: 065
     Dates: start: 20191007
  6. VARGATEF [Suspect]
     Active Substance: NINTEDANIB
     Route: 065
     Dates: start: 20190904
  7. DOCETAXEL. [Suspect]
     Active Substance: DOCETAXEL
     Route: 065
     Dates: start: 20190731
  8. VARGATEF [Suspect]
     Active Substance: NINTEDANIB
     Route: 065
     Dates: start: 20191118
  9. VARGATEF [Suspect]
     Active Substance: NINTEDANIB
     Route: 065
     Dates: start: 20191028
  10. VARGATEF [Suspect]
     Active Substance: NINTEDANIB
     Route: 065
     Dates: start: 20200108
  11. DOCETAXEL. [Suspect]
     Active Substance: DOCETAXEL
     Route: 065
     Dates: start: 20190904
  12. VARGATEF [Suspect]
     Active Substance: NINTEDANIB
     Indication: ADENOCARCINOMA
     Route: 065
     Dates: start: 20190710
  13. VARGATEF [Suspect]
     Active Substance: NINTEDANIB
     Route: 065
     Dates: start: 20190731
  14. VARGATEF [Suspect]
     Active Substance: NINTEDANIB
     Route: 065
     Dates: start: 20191210
  15. DOCETAXEL. [Suspect]
     Active Substance: DOCETAXEL
     Indication: ADENOCARCINOMA
     Route: 065
     Dates: start: 20190710
  16. DOCETAXEL. [Suspect]
     Active Substance: DOCETAXEL
     Route: 065
     Dates: start: 20191118
  17. DOCETAXEL. [Suspect]
     Active Substance: DOCETAXEL
     Route: 065
     Dates: start: 20191210
  18. DOCETAXEL. [Suspect]
     Active Substance: DOCETAXEL
     Route: 065
     Dates: start: 20191028

REACTIONS (1)
  - Brain neoplasm malignant [Fatal]

NARRATIVE: CASE EVENT DATE: 20200117
